FAERS Safety Report 5043015-5 (Version None)
Quarter: 2006Q3

REPORT INFORMATION
  Report Type: 
  Country: None (occurrence: None)
  Receive Date: 20060705
  Receipt Date: 20060626
  Transmission Date: 20061208
  Serious: Yes (Other)
  Sender: FDA-Public Use
  Company Number: PHNU2006DE02359

PATIENT
  Sex: Female

DRUGS (22)
  1. CLOZAPINE [Suspect]
     Indication: SCHIZOPHRENIA
     Dosage: 150 MG/DAY
     Route: 048
     Dates: start: 19950101, end: 20060126
  2. CLOZAPINE [Suspect]
     Dosage: 50 TO 150 MG/DAY
     Route: 048
     Dates: start: 20060127, end: 20060213
  3. CLOZAPINE [Suspect]
     Dosage: 200 MG/DAY
     Route: 048
     Dates: start: 20060214, end: 20060218
  4. CLOZAPINE [Suspect]
     Dosage: 250 MG/DAY
     Route: 048
     Dates: start: 20060219, end: 20060223
  5. CLOZAPINE [Suspect]
     Dosage: 300 MG/DAY
     Route: 048
     Dates: start: 20060224, end: 20060312
  6. CLOZAPINE [Suspect]
     Dosage: 400 MG/DAY
     Route: 048
     Dates: start: 20060313, end: 20060328
  7. CLOZAPINE [Suspect]
     Dosage: 425 MG/DAY
     Route: 048
     Dates: start: 20060329, end: 20060329
  8. CLOZAPINE [Suspect]
     Dosage: 450 MG/DAY
     Route: 048
     Dates: start: 20060330, end: 20060405
  9. CLOZAPINE [Suspect]
     Dosage: 500 MG/DAY
     Route: 048
     Dates: start: 20060406, end: 20060507
  10. CLOZAPINE [Suspect]
     Dosage: 550 MG/DAY
     Route: 048
     Dates: start: 20060508, end: 20060517
  11. EUNERPAN [Suspect]
     Dosage: 100 MG, QD
     Route: 048
     Dates: start: 20060403, end: 20060518
  12. RISPERDAL [Concomitant]
     Dosage: 1 TO 2 MG/DAY
     Route: 048
     Dates: start: 20060420, end: 20060425
  13. RISPERDAL [Concomitant]
     Dosage: 3 MG/DAY
     Route: 048
     Dates: start: 20060426, end: 20060427
  14. RISPERDAL [Concomitant]
     Dosage: 4 MG/DAY
     Route: 048
     Dates: start: 20060428, end: 20060501
  15. RISPERDAL [Concomitant]
     Dosage: 6 MG/DAY
     Route: 048
     Dates: start: 20060502, end: 20060522
  16. RISPERDAL [Concomitant]
     Dosage: 8 MG/DAY
     Route: 048
     Dates: start: 20060523, end: 20060523
  17. RISPERDAL [Concomitant]
     Dosage: 4 MG/DAY
     Route: 048
     Dates: start: 20060524
  18. PANTOZOL [Concomitant]
     Dosage: 40 MG/DAY
     Route: 048
     Dates: start: 20060125
  19. SYREA [Concomitant]
     Dosage: 1000 MG/DAY
     Route: 048
     Dates: start: 20060125, end: 20060412
  20. SYREA [Concomitant]
     Dosage: 1500 MG/DAY
     Route: 048
     Dates: start: 20060413
  21. GASTROZEPIN [Concomitant]
     Dosage: 50 MG, QD
     Route: 048
     Dates: start: 20060313
  22. BISOHEXAL [Concomitant]
     Dosage: 2.5 MG, QD
     Route: 048
     Dates: start: 20060125

REACTIONS (5)
  - C-REACTIVE PROTEIN INCREASED [None]
  - DRUG LEVEL INCREASED [None]
  - LEUKOPENIA [None]
  - PYREXIA [None]
  - UPPER RESPIRATORY TRACT INFECTION [None]
